FAERS Safety Report 7249702-2 (Version None)
Quarter: 2011Q1

REPORT INFORMATION
  Report Type: 
  Country: None (occurrence: None)
  Receive Date: 20110128
  Receipt Date: 20110119
  Transmission Date: 20110831
  Serious: Yes (Other)
  Sender: FDA-Public Use
  Company Number: ES-JNJFOC-20101106946

PATIENT
  Sex: Female

DRUGS (20)
  1. REMICADE [Suspect]
     Route: 064
  2. REMICADE [Suspect]
     Route: 064
  3. REMICADE [Suspect]
     Route: 064
  4. REMICADE [Suspect]
     Indication: DRUG EXPOSURE VIA BREAST MILK
     Route: 064
  5. REMICADE [Suspect]
     Route: 064
  6. REMICADE [Suspect]
     Route: 064
  7. REMICADE [Suspect]
     Route: 064
  8. REMICADE [Suspect]
     Route: 064
  9. REMICADE [Suspect]
     Route: 064
  10. REMICADE [Suspect]
     Route: 064
  11. REMICADE [Suspect]
     Route: 064
  12. REMICADE [Suspect]
     Route: 064
  13. REMICADE [Suspect]
     Route: 064
  14. REMICADE [Suspect]
     Route: 064
  15. REMICADE [Suspect]
     Route: 064
  16. REMICADE [Suspect]
     Route: 064
  17. REMICADE [Suspect]
     Route: 064
  18. REMICADE [Suspect]
     Route: 064
  19. REMICADE [Suspect]
     Route: 064
  20. REMICADE [Suspect]
     Indication: DRUG EXPOSURE DURING PREGNANCY
     Route: 064

REACTIONS (2)
  - SMALL FOR DATES BABY [None]
  - BREAST FEEDING [None]
